FAERS Safety Report 18777531 (Version 1)
Quarter: 2021Q1

REPORT INFORMATION
  Report Type: Spontaneous
  Country: US (occurrence: US)
  Receive Date: 20210122
  Receipt Date: 20210122
  Transmission Date: 20210419
  Serious: No
  Sender: FDA-Public Use
  Company Number: US-ROCHE-2580136

PATIENT
  Sex: Female
  Weight: 52.66 kg

DRUGS (1)
  1. RITUXAN [Suspect]
     Active Substance: RITUXIMAB
     Indication: DERMATOMYOSITIS
     Dosage: EVERY 5 MONTHS, 2 WEEKS APART ;ONGOING: YES
     Route: 041
     Dates: start: 20190401

REACTIONS (4)
  - Off label use [Unknown]
  - Influenza [Unknown]
  - Chills [Not Recovered/Not Resolved]
  - Intentional product use issue [Unknown]
